FAERS Safety Report 4557833-0 (Version None)
Quarter: 2005Q1

REPORT INFORMATION
  Report Type: 
  Country: None (occurrence: None)
  Receive Date: 20050118
  Receipt Date: 20050115
  Transmission Date: 20050727
  Serious: Yes (Hospitalization)
  Sender: FDA-Public Use
  Company Number: 9627

PATIENT
  Age: 87 Year
  Sex: Male

DRUGS (11)
  1. METHOTREXATE [Suspect]
     Dosage: 10 MG WEEKLY
     Route: 048
     Dates: start: 20030725, end: 20041209
  2. ADALIMUMAB [Concomitant]
  3. FOLIC ACID [Concomitant]
  4. DILTIAZEM [Concomitant]
  5. DIGOXIN [Concomitant]
  6. PREDNISOLONE [Concomitant]
  7. ACETAMINOPHEN [Concomitant]
  8. CALCIUM CARBONATE [Concomitant]
  9. WARFARIN [Concomitant]
  10. LANSOPRAZOLE [Concomitant]
  11. RISEDRONIC ACID [Concomitant]

REACTIONS (1)
  - JAUNDICE CHOLESTATIC [None]
